FAERS Safety Report 12936790 (Version 1)
Quarter: 2016Q4

REPORT INFORMATION
  Report Type: Spontaneous
  Country: BR (occurrence: BR)
  Receive Date: 20161114
  Receipt Date: 20161114
  Transmission Date: 20170207
  Serious: Yes (Other)
  Sender: FDA-Public Use
  Company Number: ALCN2016BR007656

PATIENT
  Age: 76 Year
  Sex: Female
  Weight: 46 kg

DRUGS (5)
  1. ATENOLOL. [Concomitant]
     Active Substance: ATENOLOL
     Indication: HYPERTENSION
     Dosage: 25 MG, QD
     Route: 065
  2. EUTIROX [Concomitant]
     Active Substance: LEVOTHYROXINE SODIUM
     Indication: HYPOTHYROIDISM
     Dosage: 75 MG, QD
     Route: 065
  3. ZOPIDEM [Concomitant]
     Active Substance: ZOLPIDEM\ZOLPIDEM TARTRATE
     Indication: HEART RATE ABNORMAL
     Dosage: 0.5 DF, QD
     Route: 065
  4. CILODEX [Suspect]
     Active Substance: CIPROFLOXACIN\DEXAMETHASONE
     Indication: EYE INFLAMMATION
     Dosage: 1 GTT, BID
     Route: 047
     Dates: start: 20161025, end: 20161026
  5. OMEPRAZOLE. [Concomitant]
     Active Substance: OMEPRAZOLE
     Indication: GASTRIC DISORDER
     Dosage: 20 MG, QD
     Route: 065

REACTIONS (2)
  - Insomnia [Unknown]
  - Arrhythmia [Recovered/Resolved]

NARRATIVE: CASE EVENT DATE: 20161025
